FAERS Safety Report 14279572 (Version 1)
Quarter: 2017Q4

REPORT INFORMATION
  Report Type: Spontaneous
  Country: DE (occurrence: DE)
  Receive Date: 20171212
  Receipt Date: 20171212
  Transmission Date: 20180321
  Serious: Yes (Other)
  Sender: FDA-Public Use
  Company Number: DE-TEVA-2017-DE-829825

PATIENT
  Sex: Female

DRUGS (1)
  1. IMATINIB [Suspect]
     Active Substance: IMATINIB

REACTIONS (5)
  - Weight decreased [Unknown]
  - Electrocardiogram QT prolonged [Recovering/Resolving]
  - Drug effect decreased [Recovering/Resolving]
  - Oedema peripheral [Unknown]
  - Nausea [Unknown]
